FAERS Safety Report 5619809-1 (Version None)
Quarter: 2008Q1

REPORT INFORMATION
  Report Type: 
  Country: None (occurrence: None)
  Receive Date: 20080208
  Receipt Date: 20080205
  Transmission Date: 20080703
  Serious: Yes (Hospitalization)
  Sender: FDA-Public Use
  Company Number: PHEH2007US15867

PATIENT
  Age: 69 Year
  Sex: Male
  Weight: 108.39 kg

DRUGS (1)
  1. TEKTURNA [Suspect]
     Indication: HYPERTENSION
     Dosage: 150 MG, QD
     Route: 048
     Dates: start: 20070822, end: 20070918

REACTIONS (5)
  - ARRHYTHMIA [None]
  - DIARRHOEA [None]
  - FATIGUE [None]
  - HIGH FREQUENCY ABLATION [None]
  - SUPRAVENTRICULAR TACHYCARDIA [None]
